FAERS Safety Report 5977480-3 (Version None)
Quarter: 2008Q4

REPORT INFORMATION
  Report Type: 
  Country: None (occurrence: None)
  Receive Date: 20081203
  Receipt Date: 20081126
  Transmission Date: 20090506
  Serious: Yes (Other)
  Sender: FDA-Public Use
  Company Number: JP-AVENTIS-200813663JP

PATIENT
  Age: 55 Year
  Sex: Female

DRUGS (4)
  1. TAXOTERE [Suspect]
     Route: 041
  2. EPIRUBICIN [Concomitant]
  3. CYCLOPHOSPHAMIDE [Concomitant]
  4. TAXOL [Concomitant]

REACTIONS (1)
  - DERMATOMYOSITIS [None]
